FAERS Safety Report 13632258 (Version 1)
Quarter: 2017Q2

REPORT INFORMATION
  Report Type: Spontaneous
  Country: US (occurrence: US)
  Receive Date: 20170531
  Receipt Date: 20170531
  Transmission Date: 20170830
  Serious: No
  Sender: FDA-Public Use
  Company Number: US-ASTELLAS-1450716

PATIENT
  Sex: Male

DRUGS (12)
  1. DIOVAN [Concomitant]
     Active Substance: VALSARTAN
  2. TARCEVA [Suspect]
     Active Substance: ERLOTINIB HYDROCHLORIDE
     Indication: MALIGNANT URINARY TRACT NEOPLASM
     Dosage: FREQUENCY: DAILY
     Route: 048
     Dates: start: 20140604
  3. EMLA [Concomitant]
     Active Substance: LIDOCAINE\PRILOCAINE
  4. AMLODIPINE [Concomitant]
     Active Substance: AMLODIPINE BESYLATE
  5. TRIAMCINOLONE [Concomitant]
     Active Substance: TRIAMCINOLONE
  6. BETAMETHASONE VALERATE. [Concomitant]
     Active Substance: BETAMETHASONE VALERATE
  7. PHENERGAN [Concomitant]
     Active Substance: PROMETHAZINE HYDROCHLORIDE
  8. CELEXA [Concomitant]
     Active Substance: CITALOPRAM HYDROBROMIDE
  9. MS CONTIN [Concomitant]
     Active Substance: MORPHINE SULFATE
  10. ZOFRAN [Concomitant]
     Active Substance: ONDANSETRON HYDROCHLORIDE
  11. XARELTO [Concomitant]
     Active Substance: RIVAROXABAN
  12. VICODIN [Concomitant]
     Active Substance: ACETAMINOPHEN\HYDROCODONE BITARTRATE

REACTIONS (3)
  - Nausea [Unknown]
  - Fatigue [Unknown]
  - Myalgia [Unknown]
